FAERS Safety Report 7610474-0 (Version None)
Quarter: 2011Q3

REPORT INFORMATION
  Report Type: 
  Country: None (occurrence: None)
  Receive Date: 20110715
  Receipt Date: 20081021
  Transmission Date: 20111222
  Serious: Yes (Death, Hospitalization, Other)
  Sender: FDA-Public Use
  Company Number: US-BAYER-200836566NA

PATIENT
  Age: 79 Year
  Sex: Female
  Weight: 54 kg

DRUGS (24)
  1. TRASYLOL [Suspect]
     Dosage: 100 ML, LOADING DOSE
     Route: 042
     Dates: start: 20050204, end: 20050204
  2. NITROGLYCERIN [Concomitant]
     Dosage: UNK
     Route: 042
     Dates: start: 20050204
  3. DOPAMINE HCL [Concomitant]
     Dosage: UNK
     Route: 042
     Dates: start: 20050204
  4. ISOVUE-128 [Concomitant]
     Indication: CATHETERISATION CARDIAC
     Dosage: UNK
     Dates: start: 20050202
  5. LASIX [Concomitant]
     Dosage: 20 MG, UNK
     Route: 042
     Dates: start: 20050202
  6. VECURONIUM BROMIDE [Concomitant]
     Dosage: UNK
     Route: 042
     Dates: start: 20050204
  7. SUFENTANIL CITRATE [Concomitant]
     Dosage: UNK
     Route: 042
     Dates: start: 20050204
  8. THROMBIN LOCAL SOLUTION [Concomitant]
     Dosage: UNK
     Route: 042
     Dates: start: 20050204
  9. TRASYLOL [Suspect]
     Dosage: 25 ML/HOUR, INFUSION
     Route: 042
     Dates: start: 20050204, end: 20050204
  10. LOVENOX [Concomitant]
     Dosage: 80 MG, UNK
     Route: 042
     Dates: start: 20050202
  11. NITROGLYCERIN [Concomitant]
     Dosage: UNK
     Route: 042
     Dates: start: 20050202
  12. MORPHINE [Concomitant]
     Dosage: 2 MG, UNK
     Route: 042
     Dates: start: 20050202
  13. MIDAZOLAM HCL [Concomitant]
     Dosage: UNK
     Route: 042
     Dates: start: 20050204
  14. TRASYLOL [Suspect]
     Indication: PRODUCT USED FOR UNKNOWN INDICATION
     Dosage: 1 ML, ONCE
     Route: 042
     Dates: start: 20050204, end: 20050204
  15. LASIX [Concomitant]
     Dosage: UNK
     Route: 042
     Dates: start: 20050204
  16. MORPHINE [Concomitant]
     Dosage: UNK
     Route: 042
     Dates: start: 20050204
  17. CARDIZEM [Concomitant]
     Dosage: 240 MG, UNK
     Route: 048
  18. EPHEDRINE [Concomitant]
     Dosage: UNK
     Route: 042
     Dates: start: 20050204
  19. HEPARIN [Concomitant]
     Dosage: UNK
     Route: 042
     Dates: start: 20050204
  20. PAPAVERINE [Concomitant]
     Dosage: UNK
     Route: 042
     Dates: start: 20050204
  21. KETAMINE HCL [Concomitant]
     Dosage: UNK
     Route: 042
     Dates: start: 20050204
  22. VERAPAMIL [Concomitant]
     Dosage: UNK
     Route: 042
     Dates: start: 20050204
  23. PROTAMINE SULFATE [Concomitant]
     Dosage: UNK
     Route: 042
     Dates: start: 20050204
  24. RED BLOOD CELLS [Concomitant]
     Dosage: 2 U, UNK
     Route: 042
     Dates: start: 20050204

REACTIONS (11)
  - RENAL FAILURE [None]
  - UNEVALUABLE EVENT [None]
  - DEATH [None]
  - RENAL INJURY [None]
  - ANHEDONIA [None]
  - PAIN [None]
  - STRESS [None]
  - ANXIETY [None]
  - INJURY [None]
  - RENAL IMPAIRMENT [None]
  - FEAR [None]
